FAERS Safety Report 12414538 (Version 1)
Quarter: 2016Q2

REPORT INFORMATION
  Report Type: Report from Study
  Country: AU (occurrence: AU)
  Receive Date: 20160528
  Receipt Date: 20160528
  Transmission Date: 20160815
  Serious: Yes (Hospitalization)
  Sender: FDA-Public Use
  Company Number: AU-ACCORD-040980

PATIENT
  Age: 41 Year
  Sex: Female

DRUGS (2)
  1. METHOTREXATE [Suspect]
     Active Substance: METHOTREXATE
     Indication: ECTOPIC PREGNANCY
     Dosage: FOUR DOSES OF SYSTEMIC METHOTREXATE
  2. FOLINIC ACID [Concomitant]
     Active Substance: LEUCOVORIN

REACTIONS (2)
  - Off label use [Unknown]
  - Treatment failure [Unknown]
